FAERS Safety Report 25658368 (Version 1)
Quarter: 2025Q3

REPORT INFORMATION
  Report Type: Spontaneous
  Country: EU (occurrence: EU)
  Receive Date: 20250808
  Receipt Date: 20250808
  Transmission Date: 20251021
  Serious: Yes (Hospitalization)
  Sender: ROCHE
  Company Number: EU-NOVPHSZ-PHHY2018CZ196349

PATIENT
  Age: 25 Year
  Sex: Male

DRUGS (31)
  1. XOLAIR [Suspect]
     Active Substance: OMALIZUMAB
     Indication: Urticaria
     Route: 048
  2. XOLAIR [Suspect]
     Active Substance: OMALIZUMAB
     Indication: Chronic spontaneous urticaria
     Route: 065
  3. XOLAIR [Suspect]
     Active Substance: OMALIZUMAB
     Route: 065
  4. PREDNISONE [Suspect]
     Active Substance: PREDNISONE
     Indication: Urticaria
     Route: 048
     Dates: start: 2016
  5. PREDNISONE [Suspect]
     Active Substance: PREDNISONE
     Indication: Chronic spontaneous urticaria
     Dosage: 60 MILLIGRAM, ONCE A DAY
     Route: 065
     Dates: start: 20160212, end: 20160225
  6. PREDNISONE [Suspect]
     Active Substance: PREDNISONE
     Dosage: 40 MILLIGRAM, ONCE A DAY
     Route: 048
     Dates: start: 20160226
  7. PREDNISONE [Suspect]
     Active Substance: PREDNISONE
     Dosage: 10 MG, QD
     Route: 048
     Dates: start: 201612
  8. PREDNISONE [Suspect]
     Active Substance: PREDNISONE
     Dosage: 10 MILLIGRAM, ONCE A DAY
     Route: 065
  9. AZITHROMYCIN [Suspect]
     Active Substance: AZITHROMYCIN
     Indication: Urticaria
     Dosage: 500 MILLIGRAM, ONCE A DAY, START DATE: 03-FEB-2016
     Route: 065
     Dates: end: 20160209
  10. AZITHROMYCIN [Suspect]
     Active Substance: AZITHROMYCIN
     Indication: Chronic spontaneous urticaria
  11. AMOXICILLIN [Suspect]
     Active Substance: AMOXICILLIN
     Indication: Urticaria
     Dosage: 1 GRAM, TWO TIMES A DAY, START DATE: 26-FEB-2016
     Route: 048
  12. AMOXICILLIN [Suspect]
     Active Substance: AMOXICILLIN
     Indication: Chronic spontaneous urticaria
  13. BILASTINE [Suspect]
     Active Substance: BILASTINE
     Indication: Chronic spontaneous urticaria
     Dosage: 20 MG, QD
     Route: 065
     Dates: start: 201601, end: 201601
  14. BILASTINE [Suspect]
     Active Substance: BILASTINE
     Indication: Urticaria chronic
     Dosage: 60 MG, QD
     Route: 065
     Dates: start: 20160226
  15. BILASTINE [Suspect]
     Active Substance: BILASTINE
     Dosage: 40 MG, QD
     Route: 048
     Dates: start: 201601, end: 20160226
  16. BILASTINE [Suspect]
     Active Substance: BILASTINE
     Dosage: 40 MG, QD
     Route: 065
     Dates: start: 201612
  17. BILASTINE [Suspect]
     Active Substance: BILASTINE
     Dosage: 20 MG, QD
     Route: 065
     Dates: start: 2016, end: 2016
  18. BILASTINE [Suspect]
     Active Substance: BILASTINE
     Dosage: 60 MG, QD
     Route: 048
     Dates: start: 201602
  19. BILASTINE [Suspect]
     Active Substance: BILASTINE
     Dosage: 40 MG, QD
     Route: 048
     Dates: end: 201602
  20. BILASTINE [Suspect]
     Active Substance: BILASTINE
     Route: 065
  21. DESLORATADINE [Suspect]
     Active Substance: DESLORATADINE
     Indication: Urticaria
     Dosage: 5 MG, QD
     Route: 065
     Dates: start: 201601, end: 201601
  22. BISULEPIN HYDROCHLORIDE [Concomitant]
     Active Substance: BISULEPIN HYDROCHLORIDE
     Indication: Product used for unknown indication
     Route: 065
  23. BISULEPIN HYDROCHLORIDE [Concomitant]
     Active Substance: BISULEPIN HYDROCHLORIDE
     Route: 065
  24. BISULEPIN HYDROCHLORIDE [Concomitant]
     Active Substance: BISULEPIN HYDROCHLORIDE
     Route: 065
  25. BETAMETHASONE DIPROPIONATE [Concomitant]
     Active Substance: BETAMETHASONE DIPROPIONATE
     Indication: Urticaria
     Route: 050
  26. BETAMETHASONE DIPROPIONATE [Concomitant]
     Active Substance: BETAMETHASONE DIPROPIONATE
     Indication: Chronic spontaneous urticaria
  27. BETAMETHASONE [Concomitant]
     Active Substance: BETAMETHASONE
     Indication: Product used for unknown indication
     Route: 065
  28. BETAMETHASONE [Concomitant]
     Active Substance: BETAMETHASONE
     Indication: Chronic spontaneous urticaria
  29. BETAMETHASONE [Concomitant]
     Active Substance: BETAMETHASONE
     Indication: Urticaria
  30. DIPROPHOS [Concomitant]
     Active Substance: BETAMETHASONE DIPROPIONATE\BETAMETHASONE SODIUM PHOSPHATE
     Indication: Chronic spontaneous urticaria
     Route: 050
  31. DIPROPHOS [Concomitant]
     Active Substance: BETAMETHASONE DIPROPIONATE\BETAMETHASONE SODIUM PHOSPHATE
     Indication: Urticaria
     Route: 050
     Dates: start: 20160203

REACTIONS (8)
  - Abdominal pain lower [Recovered/Resolved]
  - Nausea [Recovered/Resolved]
  - Rash vesicular [Recovering/Resolving]
  - Leukocytosis [Unknown]
  - Polycythaemia [Unknown]
  - Oropharyngeal discomfort [Recovered/Resolved]
  - Prescribed overdose [Unknown]
  - Drug ineffective [Unknown]

NARRATIVE: CASE EVENT DATE: 20160101
